FAERS Safety Report 4333203-5 (Version None)
Quarter: 2004Q2

REPORT INFORMATION
  Report Type: 
  Country: None (occurrence: None)
  Receive Date: 20040402
  Receipt Date: 20040325
  Transmission Date: 20050107
  Serious: Yes (Death)
  Sender: FDA-Public Use
  Company Number: HQWYE109825MAR04

PATIENT
  Age: 80 Year
  Sex: Female

DRUGS (5)
  1. PANTOZOL (PANTOPRAZOLE, TABLET, DELAYED RELEASE) [Suspect]
     Indication: PROPHYLAXIS
     Dosage: 20 MG 2 X PER 1 DAY, ORAL
     Route: 048
     Dates: start: 20030926, end: 20030930
  2. AMARYL [Concomitant]
  3. UNACID PD ORAL (SULTAMICILLIN TOSILATE) [Concomitant]
  4. DIGOXIN [Concomitant]
  5. HEPARIN [Concomitant]

REACTIONS (7)
  - BLOOD CREATININE INCREASED [None]
  - BLOOD GLUCOSE INCREASED [None]
  - BLOOD POTASSIUM DECREASED [None]
  - HAEMOGLOBIN DECREASED [None]
  - HAEMORRHAGE [None]
  - PETECHIAE [None]
  - THROMBOCYTOPENIA [None]
